FAERS Safety Report 20393812 (Version 2)
Quarter: 2022Q1

REPORT INFORMATION
  Report Type: Report from Study
  Country: BR (occurrence: BR)
  Receive Date: 20220128
  Receipt Date: 20220210
  Transmission Date: 20220423
  Serious: Yes (Hospitalization)
  Sender: FDA-Public Use
  Company Number: BR-ABBVIE-22K-020-4250534-00

PATIENT
  Sex: Female
  Weight: 95 kg

DRUGS (1)
  1. RINVOQ [Suspect]
     Active Substance: UPADACITINIB
     Indication: Rheumatoid arthritis
     Route: 048

REACTIONS (5)
  - Hypotension [Not Recovered/Not Resolved]
  - Dysstasia [Unknown]
  - Cold sweat [Unknown]
  - COVID-19 [Recovering/Resolving]
  - Blood sodium decreased [Unknown]
